FAERS Safety Report 5568335-7 (Version None)
Quarter: 2007Q4

REPORT INFORMATION
  Report Type: 
  Country: None (occurrence: None)
  Receive Date: 20071220
  Receipt Date: 20071219
  Transmission Date: 20080405
  Serious: Yes (Life-Threatening, Hospitalization)
  Sender: FDA-Public Use
  Company Number: FR-WYE-H01813807

PATIENT
  Sex: Male

DRUGS (2)
  1. EUPANTOL [Suspect]
     Indication: OESOPHAGITIS
     Route: 048
  2. PREVISCAN [Suspect]
     Indication: ATRIAL FIBRILLATION
     Dosage: 20 MG DAILY ON EVEN DATES AND 15 MG DAILY ON ODD DATES
     Route: 048
     Dates: end: 20071109

REACTIONS (1)
  - SUBDURAL HAEMATOMA [None]
